FAERS Safety Report 8613688 (Version 2)
Quarter: 2016Q2

REPORT INFORMATION
  Report Type: Spontaneous
  Country: FR (occurrence: FR)
  Receive Date: 20120614
  Receipt Date: 20160428
  Transmission Date: 20160815
  Serious: Yes (Hospitalization)
  Sender: FDA-Public Use
  Company Number: FR-ELI_LILLY_AND_COMPANY-FR201206001215

PATIENT
  Age: 81 Year
  Sex: Female

DRUGS (5)
  1. SINTROM [Concomitant]
     Active Substance: ACENOCOUMAROL
  2. VASTEN                             /00880402/ [Concomitant]
     Active Substance: PRAVASTATIN SODIUM
     Dosage: 20 MG, UNK
  3. MONO TILDIEM [Concomitant]
     Active Substance: DILTIAZEM HYDROCHLORIDE
     Dosage: 200 MG, UNK
     Route: 048
  4. HYZAAR [Concomitant]
     Active Substance: HYDROCHLOROTHIAZIDE\LOSARTAN POTASSIUM
  5. GEMZAR [Suspect]
     Active Substance: GEMCITABINE HYDROCHLORIDE
     Indication: PANCREATIC CARCINOMA
     Dosage: UNK
     Route: 042
     Dates: start: 20120228, end: 20120228

REACTIONS (11)
  - Oedema [Recovering/Resolving]
  - Respiratory distress [Recovering/Resolving]
  - Acute kidney injury [Recovered/Resolved]
  - Cholestasis [Unknown]
  - Pancreatic duct dilatation [Unknown]
  - Hypertension [Recovering/Resolving]
  - Capillary leak syndrome [Recovered/Resolved]
  - Culture urine positive [Unknown]
  - Cardiac aneurysm [Unknown]
  - Cardiac failure [Recovered/Resolved]
  - International normalised ratio increased [Unknown]

NARRATIVE: CASE EVENT DATE: 20120306
